FAERS Safety Report 8144762-9 (Version None)
Quarter: 2012Q1

REPORT INFORMATION
  Report Type: 
  Country: None (occurrence: None)
  Receive Date: 20120217
  Receipt Date: 20120207
  Transmission Date: 20120608
  Serious: Yes (Death)
  Sender: FDA-Public Use
  Company Number: US-ACTELION-A-US2012-59608

PATIENT

DRUGS (3)
  1. SILDENAFIL [Concomitant]
  2. DIGOXIN [Concomitant]
  3. TRACLEER [Suspect]
     Indication: PULMONARY ARTERIAL HYPERTENSION
     Dosage: UNK MG, UNK
     Route: 048
     Dates: start: 20110729, end: 20120105

REACTIONS (2)
  - RIGHT VENTRICULAR DYSFUNCTION [None]
  - ARRHYTHMIA [None]
